FAERS Safety Report 6774805-6 (Version None)
Quarter: 2010Q2

REPORT INFORMATION
  Report Type: 
  Country: None (occurrence: None)
  Receive Date: 20100617
  Receipt Date: 20100607
  Transmission Date: 20101027
  Serious: Yes (Other)
  Sender: FDA-Public Use
  Company Number: FR-ROCHE-709742

PATIENT

DRUGS (2)
  1. TRASTUZUMAB [Suspect]
     Route: 065
  2. LBH589 [Suspect]
     Route: 048

REACTIONS (2)
  - ANGINA UNSTABLE [None]
  - THROMBOCYTOPENIA [None]
